FAERS Safety Report 14152666 (Version 1)
Quarter: 2017Q4

REPORT INFORMATION
  Report Type: Spontaneous
  Country: GB (occurrence: GB)
  Receive Date: 20171102
  Receipt Date: 20171102
  Transmission Date: 20180321
  Serious: Yes (Disabling, Other)
  Sender: FDA-Public Use
  Company Number: GB-PFIZER INC-2017468815

PATIENT
  Age: 58 Year
  Sex: Male
  Weight: 97.6 kg

DRUGS (9)
  1. LIPITOR [Suspect]
     Active Substance: ATORVASTATIN CALCIUM
     Dosage: 10 MG, DAILY
     Route: 048
     Dates: start: 201707, end: 20170930
  2. AMLODIPINE [Concomitant]
     Active Substance: AMLODIPINE BESYLATE
     Dosage: UNK
  3. ASPIRIN. [Concomitant]
     Active Substance: ASPIRIN
     Dosage: UNK
  4. BECONASE AQ [Concomitant]
     Active Substance: BECLOMETHASONE DIPROPIONATE MONOHYDRATE
     Dosage: UNK
  5. LIPITOR [Suspect]
     Active Substance: ATORVASTATIN CALCIUM
     Dosage: 20 MG, DAILY
     Route: 048
     Dates: start: 20170506, end: 201707
  6. DOXAZOSINE [Concomitant]
     Active Substance: DOXAZOSIN MESYLATE
     Dosage: UNK
  7. OXYBUTYNINE [Concomitant]
     Active Substance: OXYBUTYNIN CHLORIDE
     Dosage: UNK
  8. COD LIVER OIL [Concomitant]
     Active Substance: COD LIVER OIL
     Dosage: UNK
  9. FLUTICASONE FUROATE [Concomitant]
     Active Substance: FLUTICASONE FUROATE
     Dosage: UNK

REACTIONS (5)
  - Muscular weakness [Recovering/Resolving]
  - Arthralgia [Recovering/Resolving]
  - Fatigue [Recovering/Resolving]
  - Confusional state [Recovering/Resolving]
  - Visual impairment [Recovering/Resolving]

NARRATIVE: CASE EVENT DATE: 20170507
